FAERS Safety Report 4994058-9 (Version None)
Quarter: 2006Q2

REPORT INFORMATION
  Report Type: 
  Country: None (occurrence: None)
  Receive Date: 20060505
  Receipt Date: 20060424
  Transmission Date: 20061013
  Serious: Yes (Life-Threatening, Hospitalization)
  Sender: FDA-Public Use
  Company Number: PHRM2006FR01405

PATIENT
  Age: 71 Year
  Sex: Female

DRUGS (3)
  1. ZOMETA [Suspect]
     Indication: METASTASES TO BONE
     Dosage: 4 MG, ONCE/SINGLE
     Route: 042
     Dates: start: 20060306, end: 20060306
  2. ZOMETA [Suspect]
     Dosage: 3 MG, ONCE/SINGLE
     Route: 042
     Dates: start: 20060308, end: 20060308
  3. HEMIGOXINE NATIVELLE [Concomitant]

REACTIONS (2)
  - HYPOCALCAEMIA [None]
  - INAPPROPRIATE SCHEDULE OF DRUG ADMINISTRATION [None]
